FAERS Safety Report 6301080-9 (Version None)
Quarter: 2009Q3

REPORT INFORMATION
  Report Type: 
  Country: None (occurrence: None)
  Receive Date: 20090807
  Receipt Date: 20090727
  Transmission Date: 20100115
  Serious: Yes (Other)
  Sender: FDA-Public Use
  Company Number: PHHY2009IL31442

PATIENT
  Age: 70 Year
  Sex: Female

DRUGS (4)
  1. ACLASTA [Suspect]
     Indication: OSTEOPOROSIS
     Dosage: UNK
     Dates: start: 20090616
  2. CALCIUM [Concomitant]
  3. VITAMIN D [Concomitant]
  4. LOVAZA [Concomitant]

REACTIONS (5)
  - BALANCE DISORDER [None]
  - CHILLS [None]
  - INFLUENZA LIKE ILLNESS [None]
  - MYALGIA [None]
  - PYREXIA [None]
